FAERS Safety Report 17467186 (Version 2)
Quarter: 2020Q1

REPORT INFORMATION
  Report Type: Report from Study
  Country: US (occurrence: US)
  Receive Date: 20200227
  Receipt Date: 20200228
  Transmission Date: 20200409
  Serious: Yes (Hospitalization, Other)
  Sender: FDA-Public Use
  Company Number: US-GLAXOSMITHKLINE-US2020TSO000328

PATIENT
  Age: 71 Year
  Sex: Female

DRUGS (6)
  1. NIRAPARIB [Suspect]
     Active Substance: NIRAPARIB
     Dosage: 300 MG, QD
  2. LORAZEPAM. [Concomitant]
     Active Substance: LORAZEPAM
     Indication: PRODUCT USED FOR UNKNOWN INDICATION
     Dosage: UNK
  3. ABILIFY [Suspect]
     Active Substance: ARIPIPRAZOLE
     Indication: PRODUCT USED FOR UNKNOWN INDICATION
     Dosage: UNK
     Dates: start: 20191231
  4. NIRAPARIB [Suspect]
     Active Substance: NIRAPARIB
     Dosage: 100 MG, QD
  5. MELATONIN [Concomitant]
     Active Substance: MELATONIN
     Indication: PRODUCT USED FOR UNKNOWN INDICATION
     Dosage: UNK
  6. NIRAPARIB [Suspect]
     Active Substance: NIRAPARIB
     Indication: OVARIAN CANCER
     Dosage: 300 MG 7 PM W/O FOOD
     Route: 048
     Dates: start: 20191230, end: 20200123

REACTIONS (27)
  - Epistaxis [Not Recovered/Not Resolved]
  - Somnolence [Recovered/Resolved]
  - Nausea [Recovered/Resolved]
  - White blood cell count decreased [Unknown]
  - Pollakiuria [Unknown]
  - Discomfort [Unknown]
  - Heart rate increased [Recovered/Resolved]
  - Balance disorder [Recovered/Resolved]
  - Hospitalisation [Unknown]
  - Appetite disorder [Unknown]
  - Food allergy [Unknown]
  - Gingival bleeding [Unknown]
  - Fatigue [Recovering/Resolving]
  - Thrombocytopenia [Unknown]
  - Neck mass [Unknown]
  - Skin disorder [Recovering/Resolving]
  - Erythema [Recovering/Resolving]
  - Product dose omission [Unknown]
  - Insomnia [Not Recovered/Not Resolved]
  - Anal haemorrhage [Recovering/Resolving]
  - Sneezing [Unknown]
  - Diarrhoea [Recovering/Resolving]
  - Flatulence [Unknown]
  - Platelet count decreased [Unknown]
  - Dysphonia [Not Recovered/Not Resolved]
  - Dizziness [Recovered/Resolved]
  - Cystitis [Unknown]

NARRATIVE: CASE EVENT DATE: 20200101
